FAERS Safety Report 12920633 (Version 1)
Quarter: 2016Q4

REPORT INFORMATION
  Report Type: Spontaneous
  Country: US (occurrence: US)
  Receive Date: 20161106
  Receipt Date: 20161106
  Transmission Date: 20170207
  Serious: Yes (Disabling)
  Sender: FDA-Public Use
  Company Number: None

PATIENT
  Age: 63 Year
  Sex: Female
  Weight: 67.5 kg

DRUGS (3)
  1. LEVAQUIN [Suspect]
     Active Substance: LEVOFLOXACIN
     Indication: PNEUMONIA
     Route: 048
     Dates: start: 20160907, end: 20160915
  2. MINIVELLE [Concomitant]
     Active Substance: ESTRADIOL
  3. RELPAX [Concomitant]
     Active Substance: ELETRIPTAN HYDROBROMIDE

REACTIONS (4)
  - Ehlers-Danlos syndrome [None]
  - Arthralgia [None]
  - Pain in extremity [None]
  - Tendon pain [None]

NARRATIVE: CASE EVENT DATE: 20160916
